FAERS Safety Report 18276722 (Version 2)
Quarter: 2020Q4

REPORT INFORMATION
  Report Type: Report from Study
  Country: US (occurrence: US)
  Receive Date: 20200917
  Receipt Date: 20201118
  Transmission Date: 20210113
  Serious: No
  Sender: FDA-Public Use
  Company Number: US-BIOVITRUM-2020US4417

PATIENT
  Sex: Female

DRUGS (4)
  1. VITAMINS [Concomitant]
     Active Substance: VITAMINS
  2. KINERET [Suspect]
     Active Substance: ANAKINRA
     Indication: RELAPSING FEVER
     Route: 058
     Dates: start: 2016
  3. KINERET [Suspect]
     Active Substance: ANAKINRA
     Indication: ALPHA TUMOUR NECROSIS FACTOR
     Route: 058
     Dates: start: 20190711
  4. COLCHRIS [Concomitant]

REACTIONS (6)
  - Injection site pain [Unknown]
  - Injection site erythema [Unknown]
  - Injection site swelling [Unknown]
  - Injection site bruising [Unknown]
  - Intentional product misuse [Unknown]
  - Off label use [Unknown]

NARRATIVE: CASE EVENT DATE: 2016
